APPROVED DRUG PRODUCT: MELFIAT-105
Active Ingredient: PHENDIMETRAZINE TARTRATE
Strength: 105MG
Dosage Form/Route: CAPSULE, EXTENDED RELEASE;ORAL
Application: A087487 | Product #001
Applicant: NUMARK LABORATORIES INC
Approved: Oct 13, 1982 | RLD: No | RS: No | Type: DISCN